FAERS Safety Report 23188843 (Version 2)
Quarter: 2023Q4

REPORT INFORMATION
  Report Type: Spontaneous
  Country: US (occurrence: US)
  Receive Date: 20231115
  Receipt Date: 20231130
  Transmission Date: 20240109
  Serious: No
  Sender: FDA-Public Use
  Company Number: US-LUNDBECK-DKLU3068834

PATIENT
  Age: 45 Year
  Sex: Female
  Weight: 94.4 kg

DRUGS (1)
  1. VYEPTI [Suspect]
     Active Substance: EPTINEZUMAB-JJMR
     Indication: Migraine
     Route: 041
     Dates: start: 20230926

REACTIONS (2)
  - Migraine [Recovering/Resolving]
  - Throat irritation [Recovered/Resolved]
